FAERS Safety Report 5294340-4 (Version None)
Quarter: 2007Q2

REPORT INFORMATION
  Report Type: 
  Country: None (occurrence: None)
  Receive Date: 20070412
  Receipt Date: 20070330
  Transmission Date: 20071010
  Serious: Yes (Other)
  Sender: FDA-Public Use
  Company Number: PHNU2007DE01419

PATIENT
  Age: 29 Year
  Sex: Male

DRUGS (3)
  1. TRILEPTAL [Suspect]
     Indication: EPILEPSY
     Dosage: 600 MG/D
     Route: 048
     Dates: start: 20000401, end: 20030401
  2. TRILEPTAL [Suspect]
     Dosage: 900 MG/D
     Route: 048
     Dates: start: 20030401
  3. PROPECIA [Concomitant]
     Indication: ALOPECIA
     Dosage: 1 MG/D

REACTIONS (4)
  - COGNITIVE DISORDER [None]
  - GRAND MAL CONVULSION [None]
  - MEMORY IMPAIRMENT [None]
  - SPEECH DISORDER [None]
